FAERS Safety Report 5351808-X (Version None)
Quarter: 2007Q2

REPORT INFORMATION
  Report Type: 
  Country: None (occurrence: None)
  Receive Date: 20070521
  Receipt Date: 20070302
  Transmission Date: 20071010
  Serious: No
  Sender: FDA-Public Use
  Company Number: WAES 0703USA00438

PATIENT
  Age: 85 Year
  Sex: Male

DRUGS (7)
  1. JANUVIA [Suspect]
     Indication: DIABETES MELLITUS NON-INSULIN-DEPENDENT
     Dosage: DAILY/PO
     Route: 048
     Dates: start: 20070227
  2. COREG [Concomitant]
  3. LIPITOR [Concomitant]
  4. PLAVIX [Concomitant]
  5. BENZAPRIL HYDROCHLORIDE [Concomitant]
  6. GLIPIZIDE [Concomitant]
  7. INSULIN [Concomitant]

REACTIONS (2)
  - NOCTURIA [None]
  - WRONG TECHNIQUE IN DRUG USAGE PROCESS [None]
